FAERS Safety Report 21244317 (Version 1)
Quarter: 2022Q3

REPORT INFORMATION
  Report Type: Spontaneous
  Country: US (occurrence: None)
  Receive Date: 20220822
  Receipt Date: 20220822
  Transmission Date: 20221026
  Serious: Yes (Hospitalization)
  Sender: FDA-Public Use
  Company Number: None

PATIENT
  Age: 66 Year
  Sex: Male
  Weight: 79.38 kg

DRUGS (9)
  1. INLYTA [Suspect]
     Active Substance: AXITINIB
     Indication: Renal cancer
     Dosage: OTHER FREQUENCY : Q12HOURS;?
     Route: 048
     Dates: start: 20220630
  2. DOCUSATE [Concomitant]
  3. FOLIC ACID [Concomitant]
  4. VITAMIN D3 [Concomitant]
  5. LEVOTHYROXINE [Concomitant]
  6. LOSARTAN [Concomitant]
  7. METOPROLOL [Concomitant]
     Active Substance: METOPROLOL
  8. NORVASC [Concomitant]
  9. SODIUM BICARBONATE [Concomitant]

REACTIONS (1)
  - Death [None]
